FAERS Safety Report 14577394 (Version 1)
Quarter: 2018Q1

REPORT INFORMATION
  Report Type: Spontaneous
  Country: US (occurrence: US)
  Receive Date: 20180227
  Receipt Date: 20180227
  Transmission Date: 20180509
  Serious: No
  Sender: FDA-Public Use
  Company Number: US-JNJFOC-20180217463

PATIENT
  Age: 63 Year
  Sex: Female
  Weight: 56.7 kg

DRUGS (2)
  1. TYLENOL REGULAR STRENGTH [Suspect]
     Active Substance: ACETAMINOPHEN
     Indication: NASOPHARYNGITIS
     Route: 048
     Dates: start: 20180210
  2. TYLENOL REGULAR STRENGTH [Suspect]
     Active Substance: ACETAMINOPHEN
     Indication: NASOPHARYNGITIS
     Route: 048

REACTIONS (2)
  - Product label issue [Unknown]
  - Incorrect dose administered [Unknown]

NARRATIVE: CASE EVENT DATE: 20180210
